FAERS Safety Report 5008688-1 (Version None)
Quarter: 2006Q2

REPORT INFORMATION
  Report Type: 
  Country: None (occurrence: None)
  Receive Date: 20060523
  Receipt Date: 20060515
  Transmission Date: 20061013
  Serious: Yes (Other)
  Sender: FDA-Public Use
  Company Number: AU-GLAXOSMITHKLINE-B0424781A

PATIENT
  Sex: Male

DRUGS (2)
  1. AROPAX [Suspect]
     Indication: DRUG USE FOR UNKNOWN INDICATION
     Route: 065
  2. BACLOFEN [Concomitant]
     Route: 065

REACTIONS (5)
  - FACIAL PAIN [None]
  - INSOMNIA [None]
  - PAIN [None]
  - SEROTONIN SYNDROME [None]
  - SUICIDAL IDEATION [None]
